FAERS Safety Report 6907841-7 (Version None)
Quarter: 2010Q3

REPORT INFORMATION
  Report Type: 
  Country: None (occurrence: None)
  Receive Date: 20100803
  Receipt Date: 20091120
  Transmission Date: 20110219
  Serious: Yes (Other)
  Sender: FDA-Public Use
  Company Number: 2009SP037574

PATIENT
  Age: 50 Year
  Sex: Male

DRUGS (3)
  1. INTRON A [Suspect]
     Indication: MALIGNANT MELANOMA
     Dosage: ; IV
     Route: 042
     Dates: start: 20090601, end: 20090601
  2. INTRON A [Suspect]
     Dates: start: 20090629
  3. INTRON A [Suspect]

REACTIONS (14)
  - AMNESIA [None]
  - BALANCE DISORDER [None]
  - CEREBROVASCULAR ACCIDENT [None]
  - CHEILITIS [None]
  - CONVULSION [None]
  - FATIGUE [None]
  - GASTROOESOPHAGEAL REFLUX DISEASE [None]
  - HEADACHE [None]
  - HYPERTENSION [None]
  - MOBILITY DECREASED [None]
  - MOTOR DYSFUNCTION [None]
  - PYREXIA [None]
  - SPEECH DISORDER [None]
  - TREMOR [None]
